FAERS Safety Report 7776347-8 (Version None)
Quarter: 2011Q3

REPORT INFORMATION
  Report Type: 
  Country: None (occurrence: None)
  Receive Date: 20110926
  Receipt Date: 20110916
  Transmission Date: 20111222
  Serious: Yes (Other)
  Sender: FDA-Public Use
  Company Number: US-JNJFOC-20110907948

PATIENT
  Age: 69 Year
  Sex: Male

DRUGS (6)
  1. METOPROLOL SUCCINATE [Concomitant]
  2. PREDNISONE [Concomitant]
  3. ZYTIGA [Suspect]
     Indication: PRODUCT USED FOR UNKNOWN INDICATION
     Route: 048
     Dates: start: 20110601
  4. DENOSUMAB [Concomitant]
  5. LUPRON [Concomitant]
  6. ZOCOR [Concomitant]

REACTIONS (1)
  - THROMBOCYTOPENIA [None]
